FAERS Safety Report 21299470 (Version 1)
Quarter: 2022Q3

REPORT INFORMATION
  Report Type: Spontaneous
  Country: US (occurrence: None)
  Receive Date: 20220906
  Receipt Date: 20220906
  Transmission Date: 20221027
  Serious: No
  Sender: FDA-Public Use
  Company Number: None

PATIENT

DRUGS (2)
  1. ONDANSETRON [Suspect]
     Active Substance: ONDANSETRON
     Dosage: OTHER ROUTE : INTRAVENOUS OR INTRAMUSCULAR;?
     Route: 050
  2. NALOXONE HCL [Suspect]
     Active Substance: NALOXONE HYDROCHLORIDE

REACTIONS (2)
  - Product packaging confusion [None]
  - Product packaging issue [None]
